FAERS Safety Report 9772091 (Version 2)
Quarter: 2013Q4

REPORT INFORMATION
  Report Type: Spontaneous
  Country: BR (occurrence: BR)
  Receive Date: 20131219
  Receipt Date: 20131224
  Transmission Date: 20140711
  Serious: Yes (Other)
  Sender: FDA-Public Use
  Company Number: BR-JNJFOC-20131210208

PATIENT
  Age: 67 Year
  Sex: Male

DRUGS (3)
  1. XARELTO [Suspect]
     Indication: THROMBOSIS PROPHYLAXIS
     Route: 048
     Dates: start: 20131207
  2. XARELTO [Suspect]
     Indication: BONE OPERATION
     Route: 048
     Dates: start: 20131207
  3. CAPTOPRIL [Concomitant]
     Indication: HYPERTENSION
     Route: 048
     Dates: start: 2009

REACTIONS (9)
  - Confusional state [Not Recovered/Not Resolved]
  - Depressed mood [Unknown]
  - Pallor [Unknown]
  - Asthenia [Not Recovered/Not Resolved]
  - Somnolence [Not Recovered/Not Resolved]
  - Hypoaesthesia [Not Recovered/Not Resolved]
  - Distractibility [Not Recovered/Not Resolved]
  - Memory impairment [Unknown]
  - Off label use [Unknown]
